FAERS Safety Report 14535791 (Version 1)
Quarter: 2018Q1

REPORT INFORMATION
  Report Type: Spontaneous
  Country: US (occurrence: US)
  Receive Date: 20180215
  Receipt Date: 20180215
  Transmission Date: 20180509
  Serious: No
  Sender: FDA-Public Use
  Company Number: US-RADIUS HEALTH INC.-2017US000261

PATIENT
  Age: 85 Year
  Sex: Female

DRUGS (1)
  1. TYMLOS [Suspect]
     Active Substance: ABALOPARATIDE
     Indication: OSTEOPOROSIS POSTMENOPAUSAL
     Dosage: 80 MCG, DAILY
     Route: 058
     Dates: end: 20171106

REACTIONS (7)
  - Depression [Unknown]
  - Myalgia [Unknown]
  - Insomnia [Unknown]
  - Chest pain [Unknown]
  - Blood glucose increased [Unknown]
  - Nightmare [Unknown]
  - Rash generalised [Unknown]
